FAERS Safety Report 5686726 (Version 10)
Quarter: 2013Q3

REPORT INFORMATION
  Report Type: Spontaneous
  Country: US (occurrence: US)
  Receive Date: 20041201
  Receipt Date: 20130709
  Transmission Date: 20140515
  Serious: Yes (Hospitalization, Disabling, Other)
  Sender: FDA-Public Use
  Company Number: US-ROCHE-387369

PATIENT
  Age: 24 Year
  Sex: Male
  Weight: 77.1 kg

DRUGS (3)
  1. ACCUTANE [Suspect]
     Indication: ACNE
     Dosage: MAXIMUM DOSE AVERAGED 70MG PER DAY
     Route: 048
  2. ACCUTANE [Suspect]
     Route: 048
     Dates: start: 19980520, end: 19980728
  3. ACCUTANE [Suspect]
     Route: 048
     Dates: start: 19980811, end: 19980910

REACTIONS (13)
  - Colitis ulcerative [Unknown]
  - Pouchitis [Unknown]
  - Inflammatory bowel disease [Unknown]
  - Colitis [Unknown]
  - Rectal haemorrhage [Unknown]
  - Intestinal haemorrhage [Unknown]
  - Gastrointestinal disorder [Unknown]
  - Crohn^s disease [Unknown]
  - Colitis [Unknown]
  - Infectious colitis [Unknown]
  - Depression [Unknown]
  - Portal vein thrombosis [Unknown]
  - Ileus paralytic [Unknown]
